FAERS Safety Report 8542350-3 (Version None)
Quarter: 2012Q3

REPORT INFORMATION
  Report Type: 
  Country: None (occurrence: None)
  Receive Date: 20120726
  Receipt Date: 20110916
  Transmission Date: 20120928
  Serious: Yes (Other)
  Sender: FDA-Public Use
  Company Number: US-ASTRAZENECA-2011SE55236

PATIENT
  Age: 46 Year
  Sex: Female

DRUGS (3)
  1. SEROQUEL XR [Suspect]
     Indication: SUICIDAL IDEATION
     Route: 048
  2. DILANTIN [Concomitant]
  3. SEROQUEL XR [Suspect]
     Indication: TACHYPHRENIA
     Route: 048

REACTIONS (7)
  - CONVULSION [None]
  - SLEEP DISORDER [None]
  - CRYING [None]
  - BIPOLAR DISORDER [None]
  - DRUG DOSE OMISSION [None]
  - DRUG PRESCRIBING ERROR [None]
  - NERVOUSNESS [None]
